FAERS Safety Report 11576518 (Version 3)
Quarter: 2015Q4

REPORT INFORMATION
  Report Type: Report from Study
  Country: NL (occurrence: NL)
  Receive Date: 20150930
  Receipt Date: 20151126
  Transmission Date: 20160304
  Serious: Yes (Other)
  Sender: FDA-Public Use
  Company Number: NL-AMGEN-NLDSL2015088171

PATIENT
  Age: 74 Year
  Sex: Female

DRUGS (2)
  1. XGEVA [Suspect]
     Active Substance: DENOSUMAB
     Indication: PROPHYLAXIS
     Dosage: 120 MG/ 1.70ML, Q4WK
     Route: 058
  2. XGEVA [Suspect]
     Active Substance: DENOSUMAB
     Dosage: UNK
     Route: 058

REACTIONS (6)
  - Abdominal discomfort [Unknown]
  - Large intestine polyp [Recovering/Resolving]
  - Neoplasm progression [Unknown]
  - Abdominal pain [Recovering/Resolving]
  - Radiation injury [Unknown]
  - Haematochezia [Unknown]

NARRATIVE: CASE EVENT DATE: 20150723
